FAERS Safety Report 6697449-3 (Version None)
Quarter: 2010Q2

REPORT INFORMATION
  Report Type: 
  Country: None (occurrence: None)
  Receive Date: 20100422
  Receipt Date: 20100407
  Transmission Date: 20101027
  Serious: Yes (Hospitalization, Other)
  Sender: FDA-Public Use
  Company Number: 2010-00412

PATIENT
  Age: 54 Year
  Sex: Female

DRUGS (1)
  1. LISINOPRIL [Suspect]
     Indication: DRUG USE FOR UNKNOWN INDICATION

REACTIONS (22)
  - ABDOMINAL DISTENSION [None]
  - ABDOMINAL PAIN [None]
  - ARTHRALGIA [None]
  - COUGH [None]
  - DEPRESSION [None]
  - DYSPHONIA [None]
  - FALL [None]
  - FINGER DEFORMITY [None]
  - GRAND MAL CONVULSION [None]
  - HAND FRACTURE [None]
  - IMPAIRED HEALING [None]
  - MENTAL DISORDER [None]
  - MOOD ALTERED [None]
  - MULTIPLE INJURIES [None]
  - MYALGIA [None]
  - NAUSEA [None]
  - PAIN [None]
  - PANIC ATTACK [None]
  - SYNCOPE [None]
  - VOMITING [None]
  - WEIGHT INCREASED [None]
  - WRIST FRACTURE [None]
